FAERS Safety Report 7459397-0 (Version None)
Quarter: 2011Q2

REPORT INFORMATION
  Report Type: 
  Country: None (occurrence: None)
  Receive Date: 20110505
  Receipt Date: 20110420
  Transmission Date: 20111010
  Serious: Yes (Hospitalization)
  Sender: FDA-Public Use
  Company Number: US-JNJFOC-20110410493

PATIENT
  Sex: Female
  Weight: 63.5 kg

DRUGS (7)
  1. FENTANYL CITRATE [Suspect]
     Indication: PAIN
     Route: 062
  2. DURAGESIC [Suspect]
     Route: 062
  3. LORAZEPAM [Concomitant]
     Indication: ANXIETY
     Route: 048
  4. DURAGESIC [Suspect]
     Indication: PAIN
     Route: 062
  5. DURAGESIC [Suspect]
     Route: 062
  6. PERCOCET [Concomitant]
     Indication: BREAKTHROUGH PAIN
     Dosage: 5/325 MG AS NEEDED
     Route: 048
  7. AMBIEN [Concomitant]
     Indication: SLEEP DISORDER
     Dosage: 10 MG AT BEDTIME
     Route: 048

REACTIONS (17)
  - DRUG DOSE OMISSION [None]
  - ANXIETY [None]
  - THINKING ABNORMAL [None]
  - LUMBAR SPINAL STENOSIS [None]
  - HYPOAESTHESIA [None]
  - FALL [None]
  - TREATMENT NONCOMPLIANCE [None]
  - PAIN [None]
  - PERIPHERAL COLDNESS [None]
  - BURNING SENSATION [None]
  - POOR PERIPHERAL CIRCULATION [None]
  - RENAL NEOPLASM [None]
  - INSOMNIA [None]
  - GAIT DISTURBANCE [None]
  - BACK PAIN [None]
  - WITHDRAWAL SYNDROME [None]
  - INTERVERTEBRAL DISC DEGENERATION [None]
